FAERS Safety Report 15376808 (Version 1)
Quarter: 2018Q3

REPORT INFORMATION
  Report Type: Spontaneous
  Country: US (occurrence: US)
  Receive Date: 20180913
  Receipt Date: 20180913
  Transmission Date: 20181010
  Serious: No
  Sender: FDA-Public Use
  Company Number: US-TEVA-2018-US-952917

PATIENT
  Sex: Male

DRUGS (1)
  1. FISH OIL [Suspect]
     Active Substance: FISH OIL

REACTIONS (3)
  - Drug dispensing error [Unknown]
  - Product odour abnormal [Unknown]
  - Product taste abnormal [Unknown]
